FAERS Safety Report 7009870-4 (Version None)
Quarter: 2010Q3

REPORT INFORMATION
  Report Type: 
  Country: None (occurrence: None)
  Receive Date: 20100923
  Receipt Date: 20100916
  Transmission Date: 20110219
  Serious: Yes (Other)
  Sender: FDA-Public Use
  Company Number: AT-ROCHE-727924

PATIENT
  Sex: Male

DRUGS (2)
  1. AVASTIN [Suspect]
     Route: 042
     Dates: start: 20091030, end: 20091203
  2. CAMPTOSAR [Suspect]
     Route: 042
     Dates: start: 20091030, end: 20091203

REACTIONS (2)
  - OSTEITIS [None]
  - PULPITIS DENTAL [None]
